FAERS Safety Report 19503195 (Version 1)
Quarter: 2021Q3

REPORT INFORMATION
  Report Type: Spontaneous
  Country: US (occurrence: US)
  Receive Date: 20210707
  Receipt Date: 20210707
  Transmission Date: 20211014
  Serious: No
  Sender: FDA-Public Use
  Company Number: US-ASTRAZENECA-2021A531337

PATIENT
  Age: 18835 Day
  Sex: Female

DRUGS (1)
  1. BYDUREON [Suspect]
     Active Substance: EXENATIDE
     Dosage: UNKNOWN
     Route: 065

REACTIONS (10)
  - Blood glucose decreased [Recovered/Resolved]
  - Head discomfort [Unknown]
  - Feeling abnormal [Unknown]
  - Product use issue [Unknown]
  - Product supply issue [Unknown]
  - Blood glucose increased [Not Recovered/Not Resolved]
  - Allergy to arthropod sting [Not Recovered/Not Resolved]
  - Product dose omission issue [Unknown]
  - Headache [Unknown]
  - Visual impairment [Unknown]

NARRATIVE: CASE EVENT DATE: 20210603
